FAERS Safety Report 13603041 (Version 1)
Quarter: 2017Q2

REPORT INFORMATION
  Report Type: Spontaneous
  Country: US (occurrence: US)
  Receive Date: 20170601
  Receipt Date: 20170601
  Transmission Date: 20170830
  Serious: No
  Sender: FDA-Public Use
  Company Number: US-ARBOR PHARMACEUTICALS, LLC-US-2016ARB002172

PATIENT

DRUGS (1)
  1. HORIZANT [Suspect]
     Active Substance: GABAPENTIN ENACARBIL
     Indication: INTERVERTEBRAL DISC DEGENERATION
     Dosage: TOTAL DAILY DOSE OF 200 MG
     Route: 048

REACTIONS (4)
  - Off label use [Unknown]
  - Pain in extremity [Recovered/Resolved]
  - Pruritus [Recovered/Resolved]
  - Drug ineffective for unapproved indication [Unknown]
